FAERS Safety Report 19078138 (Version 2)
Quarter: 2021Q2

REPORT INFORMATION
  Report Type: Spontaneous
  Country: US (occurrence: US)
  Receive Date: 20210331
  Receipt Date: 20210604
  Transmission Date: 20210717
  Serious: No
  Sender: FDA-Public Use
  Company Number: US-GLAXOSMITHKLINE-US2021070271

PATIENT
  Age: 53 Year
  Sex: Female

DRUGS (1)
  1. NUCALA [Suspect]
     Active Substance: MEPOLIZUMAB
     Indication: ASTHMA
     Dosage: 100 MG, Z, EVERY 4 WEEKS
     Route: 058
     Dates: start: 2016

REACTIONS (10)
  - Injection site bruising [Not Recovered/Not Resolved]
  - Exposure via skin contact [Not Recovered/Not Resolved]
  - Wrong technique in product usage process [Unknown]
  - Product complaint [Unknown]
  - Pain [Not Recovered/Not Resolved]
  - Injection site erythema [Not Recovered/Not Resolved]
  - Accidental underdose [Not Recovered/Not Resolved]
  - Injection site pain [Not Recovered/Not Resolved]
  - Therapeutic response unexpected [Unknown]
  - Contusion [Not Recovered/Not Resolved]

NARRATIVE: CASE EVENT DATE: 20210324
